FAERS Safety Report 22784554 (Version 3)
Quarter: 2023Q4

REPORT INFORMATION
  Report Type: Report from Study
  Country: US (occurrence: US)
  Receive Date: 20230804
  Receipt Date: 20231222
  Transmission Date: 20240110
  Serious: No
  Sender: FDA-Public Use
  Company Number: US-ACADIA PHARMACEUTICALS INC.-ACA-2023-TRF-002861

PATIENT
  Sex: Female

DRUGS (13)
  1. DAYBUE [Suspect]
     Active Substance: TROFINETIDE
     Indication: Rett syndrome
     Dosage: 50 MILLILITER, BID
     Route: 048
     Dates: start: 202307
  2. DAYBUE [Suspect]
     Active Substance: TROFINETIDE
     Dosage: 30 MILLILITER, BID
     Route: 048
  3. DAYBUE [Suspect]
     Active Substance: TROFINETIDE
     Dosage: 20 MILLILITER, BID
     Route: 048
  4. DAYBUE [Suspect]
     Active Substance: TROFINETIDE
     Dosage: 10 MILLILITER, BID
     Route: 048
     Dates: end: 202307
  5. DAYBUE [Suspect]
     Active Substance: TROFINETIDE
     Dosage: 10 MILLILITER, BID, IN AM
     Route: 048
     Dates: start: 20230714, end: 202307
  6. DAYBUE [Suspect]
     Active Substance: TROFINETIDE
     Dosage: 1 MILLILITER, BID, IN AM
     Route: 048
     Dates: end: 20230725
  7. TOPIRAMATE [Concomitant]
     Active Substance: TOPIRAMATE
  8. OXCARBAZEPINE [Concomitant]
     Active Substance: OXCARBAZEPINE
  9. TRAZODONE [Concomitant]
     Active Substance: TRAZODONE HYDROCHLORIDE
  10. LEXAPRO [Concomitant]
     Active Substance: ESCITALOPRAM OXALATE
  11. AMETHYST [Concomitant]
     Active Substance: ETHINYL ESTRADIOL\LEVONORGESTREL
  12. IMODIUM A-D [Concomitant]
     Active Substance: LOPERAMIDE HYDROCHLORIDE
  13. PSYLLIUM HUSK [Concomitant]
     Active Substance: PSYLLIUM HUSK

REACTIONS (5)
  - Weight decreased [Unknown]
  - Underdose [Not Recovered/Not Resolved]
  - Product dose omission issue [Recovered/Resolved]
  - Vomiting [Not Recovered/Not Resolved]
  - Diarrhoea [Not Recovered/Not Resolved]
